FAERS Safety Report 7532385-1 (Version None)
Quarter: 2011Q2

REPORT INFORMATION
  Report Type: 
  Country: None (occurrence: None)
  Receive Date: 20110608
  Receipt Date: 20110603
  Transmission Date: 20111010
  Serious: Yes (Hospitalization, Other)
  Sender: FDA-Public Use
  Company Number: US-PFIZER INC-2010006386

PATIENT
  Sex: Male

DRUGS (2)
  1. CHANTIX [Suspect]
     Indication: SMOKING CESSATION THERAPY
     Dosage: STARTER MONTH PACK 0.5MG AND 1MG
     Dates: start: 20080529, end: 20080620
  2. PRILOSEC [Concomitant]
     Indication: GASTROOESOPHAGEAL REFLUX DISEASE
     Dosage: UNK
     Dates: start: 20080527, end: 20080801

REACTIONS (8)
  - LIVER DISORDER [None]
  - ANXIETY [None]
  - INSOMNIA [None]
  - SUICIDE ATTEMPT [None]
  - INTENTIONAL OVERDOSE [None]
  - DEPRESSION [None]
  - NERVE INJURY [None]
  - GASTRIC DISORDER [None]
